FAERS Safety Report 5098691-8 (Version None)
Quarter: 2006Q3

REPORT INFORMATION
  Report Type: 
  Country: None (occurrence: None)
  Receive Date: 20060905
  Receipt Date: 20060822
  Transmission Date: 20061208
  Serious: Yes (Hospitalization)
  Sender: FDA-Public Use
  Company Number: FABR-11473

PATIENT
  Age: 49 Year
  Sex: Male
  Weight: 63.5 kg

DRUGS (4)
  1. FABRAZYME [Suspect]
     Indication: FABRY'S DISEASE
     Dosage: 35 MG QWK IV
     Route: 042
  2. FABRAZYME [Suspect]
     Indication: FABRY'S DISEASE
     Dosage: 1 MG/KG Q2WKS IV
     Route: 042
     Dates: start: 20020913, end: 20040108
  3. LABETALOL HCL [Concomitant]
  4. NORVASC [Concomitant]

REACTIONS (3)
  - BLOOD CREATININE INCREASED [None]
  - INFLAMMATION [None]
  - OSTEOARTHRITIS [None]
